FAERS Safety Report 9399064 (Version 1)
Quarter: 2013Q3

REPORT INFORMATION
  Report Type: Spontaneous
  Country: US (occurrence: US)
  Receive Date: 20130715
  Receipt Date: 20130715
  Transmission Date: 20140515
  Serious: Yes (Life-Threatening)
  Sender: FDA-Public Use
  Company Number: US-ROCHE-1247373

PATIENT
  Age: 58 Year
  Sex: Female
  Weight: 93.07 kg

DRUGS (10)
  1. VALIUM [Suspect]
     Indication: ANXIETY DISORDER
     Route: 048
     Dates: start: 20090317
  2. VALIUM [Suspect]
     Indication: PANIC ATTACK
     Dosage: AT HALF THE PREVIOUS DOSE
     Route: 048
  3. OXYCONTIN [Suspect]
     Indication: CHEST PAIN
     Route: 048
     Dates: start: 20090517
  4. OXYCONTIN [Suspect]
     Dosage: AT HALF THE PREVIOUS DOSE
     Route: 048
  5. ROXICODONE [Suspect]
     Indication: CHEST PAIN
     Route: 048
     Dates: start: 20090414
  6. ROXICODONE [Suspect]
     Dosage: AT HALF THE PREVIOUS DOSE
     Route: 048
  7. SOMA (UNITED STATES) [Concomitant]
     Indication: MUSCLE SPASMS
     Route: 048
     Dates: start: 20100316
  8. VENTOLIN INHALER [Concomitant]
     Indication: BRONCHOSPASM
     Route: 048
     Dates: start: 20120927
  9. ADVAIR DISKUS [Concomitant]
  10. CELEXA (UNITED STATES) [Concomitant]
     Indication: DEPRESSION
     Route: 048
     Dates: start: 20090317

REACTIONS (2)
  - Asthma [Unknown]
  - Respiratory failure [Recovered/Resolved]
